FAERS Safety Report 10869417 (Version 1)
Quarter: 2015Q1

REPORT INFORMATION
  Report Type: Spontaneous
  Country: DE (occurrence: DE)
  Receive Date: 20150226
  Receipt Date: 20150226
  Transmission Date: 20150721
  Serious: Yes (Other)
  Sender: FDA-Public Use
  Company Number: DE-DRREDDYS-GER/GER/15/0046205

PATIENT
  Age: 37 Year
  Sex: Female
  Weight: 78 kg

DRUGS (1)
  1. SUMATRIPTAN. [Suspect]
     Active Substance: SUMATRIPTAN
     Indication: MIGRAINE
     Route: 048

REACTIONS (2)
  - Breast pain [Unknown]
  - Exposure during pregnancy [Unknown]
